FAERS Safety Report 5533381-6 (Version None)
Quarter: 2007Q4

REPORT INFORMATION
  Report Type: 
  Country: None (occurrence: None)
  Receive Date: 20071128
  Receipt Date: 20071121
  Transmission Date: 20080405
  Serious: Yes (Death)
  Sender: FDA-Public Use
  Company Number: 163-21880-07111301

PATIENT
  Age: 73 Year
  Sex: Male

DRUGS (2)
  1. REVLIMID [Suspect]
     Indication: MYELODYSPLASTIC SYNDROME
     Dosage: 5-25MG, DAILY, ORAL; 10 MG, 1 IN 1 D, ORAL
     Route: 048
     Dates: start: 20061206
  2. REVLIMID [Suspect]
     Indication: MYELODYSPLASTIC SYNDROME
     Dosage: 5-25MG, DAILY, ORAL; 10 MG, 1 IN 1 D, ORAL
     Route: 048
     Dates: start: 20070201

REACTIONS (1)
  - DIARRHOEA [None]
